FAERS Safety Report 5788457-5 (Version None)
Quarter: 2008Q2

REPORT INFORMATION
  Report Type: 
  Country: None (occurrence: None)
  Receive Date: 20080623
  Receipt Date: 20080609
  Transmission Date: 20081010
  Serious: Yes (Hospitalization)
  Sender: FDA-Public Use
  Company Number: 2008AL005187

PATIENT
  Age: 65 Year
  Sex: Female
  Weight: 84.369 kg

DRUGS (3)
  1. DIGOXIN [Suspect]
     Indication: CARDIAC FAILURE CONGESTIVE
     Dosage: 0.25 MG DAILY PO
     Route: 048
     Dates: start: 20030101, end: 20080227
  2. LASIX [Concomitant]
  3. GLIPIZIDE [Concomitant]

REACTIONS (3)
  - ABASIA [None]
  - HYPOTENSION [None]
  - TREMOR [None]
